FAERS Safety Report 5188062-8 (Version None)
Quarter: 2006Q4

REPORT INFORMATION
  Report Type: 
  Country: None (occurrence: None)
  Receive Date: 20061214
  Receipt Date: 20061214
  Transmission Date: 20070319
  Serious: Yes (Other)
  Sender: FDA-Public Use
  Company Number: None

PATIENT
  Sex: Male

DRUGS (5)
  1. ENALAPRIL MALEATE [Suspect]
     Dosage: 20 MG BID PO
     Route: 048
  2. NORVASC [Concomitant]
  3. COUMADIN [Concomitant]
  4. GLYBURIDE [Concomitant]
  5. LANTUS [Concomitant]

REACTIONS (4)
  - ASTHENIA [None]
  - HEADACHE [None]
  - NAUSEA [None]
  - PHARMACEUTICAL PRODUCT COMPLAINT [None]
